FAERS Safety Report 9281677 (Version 1)
Quarter: 2013Q2

REPORT INFORMATION
  Report Type: Spontaneous
  Country: US (occurrence: US)
  Receive Date: 20130509
  Receipt Date: 20130509
  Transmission Date: 20140414
  Serious: Yes (Other)
  Sender: FDA-Public Use
  Company Number: US-SANOFI-AVENTIS-2013SA026133

PATIENT
  Age: 59 Year
  Sex: Female
  Weight: 82 kg

DRUGS (5)
  1. AUBAGIO [Suspect]
     Indication: MULTIPLE SCLEROSIS
     Route: 048
     Dates: start: 20121230
  2. FAMPRIDINE [Concomitant]
     Indication: MULTIPLE SCLEROSIS
     Dates: start: 2010
  3. L-THYROXINE [Concomitant]
     Indication: THYROID DISORDER
     Dates: start: 2009
  4. HYDROCHLOROTHIAZIDE [Concomitant]
     Indication: BLOOD PRESSURE
     Dates: start: 2009
  5. AMLODIPINE [Concomitant]
     Indication: BLOOD PRESSURE
     Dates: start: 2009

REACTIONS (3)
  - Ankle fracture [Recovering/Resolving]
  - Fall [Unknown]
  - Alopecia [Not Recovered/Not Resolved]
